FAERS Safety Report 8246929-8 (Version None)
Quarter: 2012Q1

REPORT INFORMATION
  Report Type: 
  Country: None (occurrence: None)
  Receive Date: 20120327
  Receipt Date: 20110525
  Transmission Date: 20120608
  Serious: Yes (Death, Hospitalization)
  Sender: FDA-Public Use
  Company Number: GB-022839

PATIENT
  Age: 73 Year
  Sex: Male

DRUGS (4)
  1. CHLORAMBUCIL [Suspect]
     Indication: CHRONIC LYMPHOCYTIC LEUKAEMIA
     Dosage: 10 MG/M2 DAYS 1-7 EVERY 28 DAYS, ORAL
     Route: 048
     Dates: start: 20110401, end: 20110504
  2. ELECTROLYTES [Concomitant]
  3. ACETAMINOPHEN [Concomitant]
  4. ACTRAPID [Concomitant]

REACTIONS (8)
  - PAIN IN EXTREMITY [None]
  - HYPERKALAEMIA [None]
  - DEEP VEIN THROMBOSIS [None]
  - GENERAL PHYSICAL HEALTH DETERIORATION [None]
  - CEREBROVASCULAR ACCIDENT [None]
  - CONDITION AGGRAVATED [None]
  - CARDIAC ARREST [None]
  - OEDEMA PERIPHERAL [None]
